FAERS Safety Report 7959386-3 (Version None)
Quarter: 2011Q4

REPORT INFORMATION
  Report Type: 
  Country: None (occurrence: None)
  Receive Date: 20111206
  Receipt Date: 20111201
  Transmission Date: 20120403
  Serious: Yes (Hospitalization)
  Sender: FDA-Public Use
  Company Number: FR-PFIZER INC-2011293255

PATIENT
  Age: 48 Year
  Sex: Female

DRUGS (7)
  1. LEVOFLOXACIN [Concomitant]
     Indication: OSTEITIS
     Dosage: 250 MG, 2X/DAY
     Route: 048
     Dates: start: 20110913, end: 20111025
  2. PROPRANOLOL [Concomitant]
     Indication: VARICES OESOPHAGEAL
     Dosage: 40 MG, 2X/DAY
     Route: 048
  3. PEGASYS [Concomitant]
     Dosage: UNK
     Dates: start: 20111006
  4. LOVENOX [Concomitant]
     Indication: THROMBOSIS PROPHYLAXIS
     Dosage: 1 DF, 1X/DAY
     Route: 058
     Dates: start: 20110801, end: 20111007
  5. CLINDAMYCIN HCL [Suspect]
     Indication: OSTEOMYELITIS
     Dosage: 600 MG, 3X/DAY
     Route: 048
     Dates: start: 20110913, end: 20111004
  6. REBETOL [Concomitant]
     Indication: HEPATITIS C VIRUS TEST POSITIVE
     Dosage: 1000 MG, 1X/DAY
     Route: 048
     Dates: start: 20110929
  7. PEGASYS [Concomitant]
     Indication: HEPATITIS C VIRUS TEST POSITIVE
     Dosage: 1 DF, WEEKLY
     Route: 058
     Dates: start: 20110929

REACTIONS (3)
  - RASH MACULO-PAPULAR [None]
  - FACE OEDEMA [None]
  - HYPERTHERMIA [None]
